FAERS Safety Report 14065404 (Version 1)
Quarter: 2017Q4

REPORT INFORMATION
  Report Type: Spontaneous
  Country: US (occurrence: US)
  Receive Date: 20171009
  Receipt Date: 20171009
  Transmission Date: 20180321
  Serious: No
  Sender: FDA-Public Use
  Company Number: US-BAYER-2017-185208

PATIENT
  Age: 50 Year
  Sex: Male

DRUGS (2)
  1. STIVARGA [Suspect]
     Active Substance: REGORAFENIB
     Dosage: 120 MG WEEKLY FOR 2 YEARS
  2. STIVARGA [Suspect]
     Active Substance: REGORAFENIB
     Dosage: DOSE REDUCED

REACTIONS (1)
  - Neuropathy peripheral [None]
